FAERS Safety Report 9043391 (Version 1)
Quarter: 2013Q1

REPORT INFORMATION
  Report Type: Report from Study
  Country: US (occurrence: US)
  Receive Date: 20130129
  Receipt Date: 20130129
  Transmission Date: 20140127
  Serious: No
  Sender: FDA-Public Use
  Company Number: US-ABBOTT-12P-163-0912803-00

PATIENT
  Sex: Female
  Weight: 118.04 kg

DRUGS (8)
  1. HUMIRA 40 MG/0.8 ML PEN [Suspect]
     Indication: CROHN^S DISEASE
     Dosage: ON HOLD WHILE SICK
     Dates: start: 201109
  2. COLAZOL [Concomitant]
     Indication: CROHN^S DISEASE
  3. IMURAN [Concomitant]
     Indication: CROHN^S DISEASE
  4. ENTOCORT [Concomitant]
     Indication: CROHN^S DISEASE
  5. LIBRAX [Concomitant]
     Indication: PRODUCT USED FOR UNKNOWN INDICATION
  6. COUMADIN [Concomitant]
     Indication: CEREBROVASCULAR ACCIDENT PROPHYLAXIS
  7. UNKNOWN MEDICATIONS [Concomitant]
     Indication: NEURALGIA
  8. UNKNOWN MEDICATIONS [Concomitant]
     Indication: INTERVERTEBRAL DISC PROTRUSION

REACTIONS (3)
  - Sinusitis [Recovered/Resolved]
  - Gastroenteritis viral [Recovered/Resolved]
  - Sinusitis [Recovered/Resolved]
